FAERS Safety Report 5786789-8 (Version None)
Quarter: 2008Q2

REPORT INFORMATION
  Report Type: 
  Country: None (occurrence: None)
  Receive Date: 20080624
  Receipt Date: 20080617
  Transmission Date: 20081010
  Serious: Yes (Hospitalization)
  Sender: FDA-Public Use
  Company Number: US-AMGEN-US287685

PATIENT
  Sex: Female

DRUGS (2)
  1. SENSIPAR [Suspect]
     Indication: HYPERPARATHYROIDISM SECONDARY
     Route: 065
  2. ARANESP [Concomitant]
     Indication: RENAL FAILURE CHRONIC

REACTIONS (5)
  - PRURITUS [None]
  - RASH [None]
  - SKIN LESION [None]
  - STAPHYLOCOCCAL SCALDED SKIN SYNDROME [None]
  - WHITE BLOOD CELL COUNT DECREASED [None]
